FAERS Safety Report 5574084-1 (Version None)
Quarter: 2007Q4

REPORT INFORMATION
  Report Type: 
  Country: None (occurrence: None)
  Receive Date: 20071221
  Receipt Date: 20071205
  Transmission Date: 20080405
  Serious: Yes (Other)
  Sender: FDA-Public Use
  Company Number: S07-FRA-05778-01

PATIENT
  Age: 54 Year
  Sex: Female
  Weight: 52 kg

DRUGS (2)
  1. ESCITALOPRAM [Suspect]
     Indication: DEPRESSION
     Dosage: 20 MG QD PO
     Route: 048
     Dates: start: 20070701, end: 20070101
  2. ZOLPIDEM TARTRATE [Concomitant]

REACTIONS (3)
  - PALPITATIONS [None]
  - STRESS [None]
  - VENTRICULAR EXTRASYSTOLES [None]
